FAERS Safety Report 12278819 (Version 1)
Quarter: 2016Q2

REPORT INFORMATION
  Report Type: Report from Study
  Country: US (occurrence: US)
  Receive Date: 20160418
  Receipt Date: 20160418
  Transmission Date: 20160815
  Serious: Yes (Other)
  Sender: FDA-Public Use
  Company Number: US-MDT-ADR-2016-00426

PATIENT
  Age: 27 Year
  Sex: Male

DRUGS (3)
  1. OXYMORPHONE [Suspect]
     Active Substance: OXYMORPHONE
     Route: 048
  2. COMPOUNDED BACLOFEN [Suspect]
     Active Substance: BACLOFEN
     Dosage: 696.2MCG/DAY
     Route: 037
  3. ORAL BACLOFEN [Suspect]
     Active Substance: BACLOFEN
     Route: 048

REACTIONS (2)
  - Muscle spasticity [Unknown]
  - No therapeutic response [Unknown]
